FAERS Safety Report 22344280 (Version 1)
Quarter: 2023Q2

REPORT INFORMATION
  Report Type: Spontaneous
  Country: US (occurrence: US)
  Receive Date: 20230519
  Receipt Date: 20230519
  Transmission Date: 20230721
  Serious: Yes (Other)
  Sender: FDA-Public Use
  Company Number: US-Zuellig Korea-ATNAHS20230501467

PATIENT
  Age: 4 Year
  Sex: Male
  Weight: 20 kg

DRUGS (1)
  1. KETOROLAC [Suspect]
     Active Substance: KETOROLAC TROMETHAMINE
     Indication: Postoperative analgesia
     Dosage: 0.5 MG/KG

REACTIONS (2)
  - Post procedural haemorrhage [Unknown]
  - Off label use [Unknown]
